FAERS Safety Report 7159700-5 (Version None)
Quarter: 2010Q4

REPORT INFORMATION
  Report Type: 
  Country: None (occurrence: None)
  Receive Date: 20101214
  Receipt Date: 20101018
  Transmission Date: 20110411
  Serious: No
  Sender: FDA-Public Use
  Company Number: US-ASTRAZENECA-2010SE49119

PATIENT
  Age: 51 Year
  Sex: Male

DRUGS (5)
  1. CRESTOR [Suspect]
     Indication: BLOOD CHOLESTEROL INCREASED
     Route: 048
     Dates: start: 20101014
  2. LOPRESSOR [Concomitant]
  3. LOVAZA [Concomitant]
  4. LISINOPRIL [Concomitant]
  5. TRIGLYCERIDE MED [Concomitant]

REACTIONS (1)
  - PAIN [None]
